FAERS Safety Report 23399826 (Version 1)
Quarter: 2024Q1

REPORT INFORMATION
  Report Type: Spontaneous
  Country: US (occurrence: US)
  Receive Date: 20240114
  Receipt Date: 20240114
  Transmission Date: 20240410
  Serious: No
  Sender: FDA-Public Use
  Company Number: US-ELI_LILLY_AND_COMPANY-US202401005528

PATIENT
  Age: 59 Year
  Sex: Female

DRUGS (1)
  1. BASAGLAR [Suspect]
     Active Substance: INSULIN GLARGINE
     Indication: Type 2 diabetes mellitus
     Dosage: 14 U, UNKNOWN
     Route: 065
     Dates: start: 202304

REACTIONS (3)
  - Incorrect dose administered [Unknown]
  - Product storage error [Unknown]
  - Vision blurred [Unknown]

NARRATIVE: CASE EVENT DATE: 20240109
